FAERS Safety Report 16172852 (Version 1)
Quarter: 2019Q2

REPORT INFORMATION
  Report Type: Spontaneous
  Country: US (occurrence: US)
  Receive Date: 20190409
  Receipt Date: 20190409
  Transmission Date: 20190711
  Serious: Yes (Other)
  Sender: FDA-Public Use
  Company Number: US-BRISTOL-MYERS SQUIBB COMPANY-BMS-2019-030877

PATIENT
  Sex: Female

DRUGS (1)
  1. MEGACE [Suspect]
     Active Substance: MEGESTROL ACETATE
     Indication: APPETITE DISORDER
     Dosage: UNVAILABLE
     Route: 048
     Dates: start: 20190201, end: 20190318

REACTIONS (2)
  - Product use in unapproved indication [Unknown]
  - Hyperthyroidism [Recovered/Resolved]
